FAERS Safety Report 8132971 (Version 2)
Quarter: 2012Q4

REPORT INFORMATION
  Report Type: 
  Country: JP (occurrence: JP)
  Receive Date: 20110913
  Receipt Date: 20121129
  Transmission Date: 20130627
  Serious: Yes (Other)
  Sender: FDA-Public Use
  Company Number: JP-ASTELLAS-2011JP006389

PATIENT
  Age: 8 Year
  Sex: Male

DRUGS (7)
  1. PROGRAF [Suspect]
     Indication: PROPHYLAXIS AGAINST GRAFT VERSUS HOST DISEASE
     Dosage: 0.02 mg/kg, Continuous
     Route: 041
  2. FLUDARABINE [Concomitant]
     Dosage: 25 mg/m2, Unknown/D
     Route: 065
  3. MELPHALAN [Concomitant]
     Dosage: 40 mg/m2, Unknown/D
  4. METHOTREXATE [Concomitant]
     Indication: PROPHYLAXIS AGAINST GRAFT VERSUS HOST DISEASE
     Dosage: 10 mg/m2, Unknown/D
     Route: 065
  5. METHOTREXATE [Concomitant]
     Dosage: 7 mg/m2, Unknown/D
     Route: 065
  6. METHOTREXATE [Concomitant]
     Dosage: 7 mg/m2, Unknown/D
     Route: 065
  7. PREDNISOLONE [Concomitant]
     Indication: ACUTE GRAFT VERSUS HOST DISEASE
     Dosage: 1 mg/kg, Unknown/D
     Route: 065

REACTIONS (4)
  - Drug ineffective [Unknown]
  - Acute graft versus host disease [Unknown]
  - Chronic graft versus host disease [Unknown]
  - Polyneuropathy [Unknown]
